FAERS Safety Report 17852113 (Version 1)
Quarter: 2020Q2

REPORT INFORMATION
  Report Type: Spontaneous
  Country: DE (occurrence: DE)
  Receive Date: 20200602
  Receipt Date: 20200602
  Transmission Date: 20200714
  Serious: Yes (Hospitalization)
  Sender: FDA-Public Use
  Company Number: NVSC2020DE151875

PATIENT
  Age: 32 Month
  Sex: Male
  Weight: 14 kg

DRUGS (1)
  1. AMLODIPIN [Suspect]
     Active Substance: AMLODIPINE BESYLATE
     Indication: ACCIDENTAL EXPOSURE TO PRODUCT
     Dosage: UNBEKANNT
     Route: 048
     Dates: start: 20191222, end: 20191222

REACTIONS (3)
  - Fatigue [Recovered/Resolved]
  - Toxicity to various agents [Recovered/Resolved]
  - Medication error [Recovered/Resolved]

NARRATIVE: CASE EVENT DATE: 20191222
